FAERS Safety Report 8289514-4 (Version None)
Quarter: 2012Q2

REPORT INFORMATION
  Report Type: 
  Country: None (occurrence: None)
  Receive Date: 20120417
  Receipt Date: 20120412
  Transmission Date: 20120825
  Serious: Yes (Life-Threatening)
  Sender: FDA-Public Use
  Company Number: FR-PFIZER INC-2012090840

PATIENT
  Age: 74 Year
  Sex: Male

DRUGS (1)
  1. CLINDAMYCIN HCL [Suspect]
     Indication: CELLULITIS STAPHYLOCOCCAL
     Dosage: 600 MG, 3X/DAY
     Route: 048
     Dates: start: 20120310, end: 20120313

REACTIONS (3)
  - HYPERTENSION [None]
  - ACUTE PULMONARY OEDEMA [None]
  - ASTHMA [None]
